FAERS Safety Report 7242936-2 (Version None)
Quarter: 2011Q1

REPORT INFORMATION
  Report Type: 
  Country: None (occurrence: None)
  Receive Date: 20110125
  Receipt Date: 20110118
  Transmission Date: 20110831
  Serious: Yes (Hospitalization)
  Sender: FDA-Public Use
  Company Number: FR-SANOFI-AVENTIS-2011SA003776

PATIENT
  Age: 66 Year
  Sex: Female

DRUGS (5)
  1. DICLOFENAC SODIUM [Suspect]
     Indication: RHEUMATOID ARTHRITIS
     Route: 048
     Dates: end: 20100423
  2. BARACLUDE [Suspect]
     Route: 048
     Dates: start: 20100701
  3. DICLOFENAC SODIUM [Suspect]
     Route: 048
     Dates: start: 20100501, end: 20100501
  4. ARAVA [Suspect]
     Indication: RHEUMATOID ARTHRITIS
     Route: 048
     Dates: start: 20010101, end: 20100401
  5. DICLOFENAC SODIUM [Suspect]
     Route: 048
     Dates: start: 20100601, end: 20100701

REACTIONS (1)
  - MIXED LIVER INJURY [None]
